FAERS Safety Report 14261923 (Version 1)
Quarter: 2017Q4

REPORT INFORMATION
  Report Type: Report from Study
  Country: US (occurrence: US)
  Receive Date: 20171208
  Receipt Date: 20171208
  Transmission Date: 20180321
  Serious: No
  Sender: FDA-Public Use
  Company Number: PHEH2017US038744

PATIENT
  Age: 27 Year
  Sex: Female

DRUGS (1)
  1. ILARIS [Suspect]
     Active Substance: CANAKINUMAB
     Indication: PRODUCT USED FOR UNKNOWN INDICATION
     Dosage: 150 MG, EVERY 3 MONTHS
     Route: 058
     Dates: start: 20170428

REACTIONS (4)
  - Malaise [Unknown]
  - Arthralgia [Unknown]
  - Muscle contractions involuntary [Unknown]
  - Vomiting [Unknown]

NARRATIVE: CASE EVENT DATE: 20171123
